FAERS Safety Report 6665140-5 (Version None)
Quarter: 2010Q2

REPORT INFORMATION
  Report Type: 
  Country: None (occurrence: None)
  Receive Date: 20100402
  Receipt Date: 20100326
  Transmission Date: 20101027
  Serious: Yes (Hospitalization)
  Sender: FDA-Public Use
  Company Number: IT-TEVA-229344ISR

PATIENT
  Sex: Male

DRUGS (2)
  1. VINCRISTINE [Suspect]
  2. VINBLASTINE SULFATE [Suspect]

REACTIONS (1)
  - PNEUMONIA [None]
